FAERS Safety Report 16528928 (Version 1)
Quarter: 2019Q3

REPORT INFORMATION
  Report Type: Spontaneous
  Country: DE (occurrence: DE)
  Receive Date: 20190703
  Receipt Date: 20190703
  Transmission Date: 20191004
  Serious: Yes (Other)
  Sender: FDA-Public Use
  Company Number: PHHY2019DE148869

PATIENT

DRUGS (4)
  1. OFTAQUIX [Concomitant]
     Active Substance: LEVOFLOXACIN
     Indication: PRODUCT USED FOR UNKNOWN INDICATION
     Dosage: 5 MG/ML, 6QD
     Route: 065
  2. BORO-SCOPOL N [Concomitant]
     Indication: PRODUCT USED FOR UNKNOWN INDICATION
     Dosage: UNK UNK, BID
     Route: 047
  3. VIGAMOX [Suspect]
     Active Substance: MOXIFLOXACIN HYDROCHLORIDE
     Indication: KLEBSIELLA INFECTION
     Dosage: 5 MG/ML, QH
     Route: 061
  4. INFLANEFRAN [Concomitant]
     Active Substance: PREDNISOLONE ACETATE
     Indication: PRODUCT USED FOR UNKNOWN INDICATION
     Dosage: UNK UNK, QH
     Route: 061

REACTIONS (2)
  - Keratitis fungal [Unknown]
  - Infective keratitis [Unknown]
